FAERS Safety Report 8399131-3 (Version None)
Quarter: 2012Q1

REPORT INFORMATION
  Report Type: 
  Country: None (occurrence: None)
  Receive Date: 20120323
  Receipt Date: 20110103
  Transmission Date: 20120608
  Serious: Yes (Other)
  Sender: FDA-Public Use
  Company Number: 163-21880-11010703

PATIENT
  Age: 62 Year
  Sex: Male

DRUGS (10)
  1. METOPROLOL ER (METOPROLOL) [Concomitant]
  2. DECADRON [Concomitant]
  3. LYRICA [Concomitant]
  4. LEVAQUIN [Concomitant]
  5. BACTRIM DS [Concomitant]
  6. REVLIMID [Suspect]
     Indication: MULTIPLE MYELOMA
     Dosage: 15 MG, 1 IN 1 D, PO, 25 MG, DAILY 21 OUT OF 28 DAYS, PO
     Route: 048
     Dates: start: 20100601
  7. REVLIMID [Suspect]
     Indication: MULTIPLE MYELOMA
     Dosage: 15 MG, 1 IN 1 D, PO, 25 MG, DAILY 21 OUT OF 28 DAYS, PO
     Route: 048
     Dates: start: 20100720, end: 20101230
  8. ANIMI-3 (ANIMI-3) [Concomitant]
  9. DIOVAN [Concomitant]
  10. VITAMIN D [Concomitant]

REACTIONS (3)
  - BLOOD CREATININE INCREASED [None]
  - NEUTROPENIA [None]
  - THROMBOCYTOPENIA [None]
